FAERS Safety Report 8758348 (Version 2)
Quarter: 2012Q4

REPORT INFORMATION
  Report Type: Spontaneous
  Country: US (occurrence: None)
  Receive Date: 20120816
  Receipt Date: 20120827
  Transmission Date: 20130627
  Serious: Yes (Hospitalization, Other)
  Sender: FDA-Public Use
  Company Number: ACO_31370_2012

PATIENT
  Age: 51 Year
  Sex: Male

DRUGS (8)
  1. AMPYRA [Suspect]
     Indication: DRUG USE FOR UNKNOWN INDICATION
     Dates: start: 201108, end: 2011
  2. AMPYRA [Suspect]
     Indication: DRUG USE FOR UNKNOWN INDICATION
     Dates: start: 201204
  3. COPAXONE (GLATIRAMER ACETATE) [Concomitant]
  4. LEXAPRO (ESCITALOPRAM OXALATE) [Concomitant]
  5. OXYBUTYNIN (OXYBUTYNIN) [Concomitant]
  6. FOSAMAX (ALENDRONATE SODIUM) [Concomitant]
  7. MULTIVITAMIN /00831701/ (VITAMINS NOS) [Concomitant]
  8. SOLUMEDROL (METHYLPREDNISOLONE SODIUM SUCCINATE) [Concomitant]

REACTIONS (4)
  - Convulsion [None]
  - Loss of consciousness [None]
  - No therapeutic response [None]
  - Urinary tract infection [None]
